FAERS Safety Report 6373498-X (Version None)
Quarter: 2009Q3

REPORT INFORMATION
  Report Type: 
  Country: None (occurrence: None)
  Receive Date: 20090924
  Receipt Date: 20090508
  Transmission Date: 20100115
  Serious: No
  Sender: FDA-Public Use
  Company Number: US-ASTRAZENECA-2009UW04233

PATIENT
  Age: 62 Year
  Sex: Female
  Weight: 99.8 kg

DRUGS (1)
  1. SEROQUEL [Suspect]
     Route: 048

REACTIONS (4)
  - DYSURIA [None]
  - MUSCLE TWITCHING [None]
  - PRESYNCOPE [None]
  - RENAL DISORDER [None]
